FAERS Safety Report 13193754 (Version 9)
Quarter: 2017Q3

REPORT INFORMATION
  Report Type: Spontaneous
  Country: US (occurrence: US)
  Receive Date: 20170207
  Receipt Date: 20170817
  Transmission Date: 20171127
  Serious: Yes (Hospitalization, Other)
  Sender: FDA-Public Use
  Company Number: PHEH2017US003913

PATIENT
  Age: 50 Year
  Sex: Female

DRUGS (2)
  1. AFINITOR [Suspect]
     Active Substance: EVEROLIMUS
     Indication: RENAL CANCER
     Dosage: 5 MG, QD
     Route: 048
     Dates: start: 20170127
  2. LENVATINIB [Suspect]
     Active Substance: LENVATINIB
     Indication: RENAL CANCER
     Dosage: 18 MG, QD
     Route: 048
     Dates: start: 20170127

REACTIONS (24)
  - Monocyte count increased [Unknown]
  - Headache [Unknown]
  - Anxiety [Unknown]
  - Platelet count increased [Unknown]
  - Hiccups [Not Recovered/Not Resolved]
  - Red cell distribution width increased [Unknown]
  - Mean cell volume decreased [Unknown]
  - Blood pressure increased [Not Recovered/Not Resolved]
  - Neutrophil count increased [Unknown]
  - Central nervous system lesion [Unknown]
  - Dysphonia [Unknown]
  - Hypercalcaemia [Unknown]
  - Protein total increased [Unknown]
  - Mean cell haemoglobin decreased [Unknown]
  - Vomiting [Unknown]
  - Migraine [Not Recovered/Not Resolved]
  - Diarrhoea [Not Recovered/Not Resolved]
  - Hepatic enzyme increased [Unknown]
  - Renal cancer [Unknown]
  - Malignant neoplasm progression [Unknown]
  - Bradyphrenia [Not Recovered/Not Resolved]
  - Seizure [Unknown]
  - Cancer pain [Recovering/Resolving]
  - Aphasia [Not Recovered/Not Resolved]

NARRATIVE: CASE EVENT DATE: 20170517
